FAERS Safety Report 19540900 (Version 2)
Quarter: 2021Q3

REPORT INFORMATION
  Report Type: Report from Study
  Country: DE (occurrence: DE)
  Receive Date: 20210713
  Receipt Date: 20210715
  Transmission Date: 20211014
  Serious: Yes (Hospitalization)
  Sender: FDA-Public Use
  Company Number: DE-GLAXOSMITHKLINE-DE2021EME135444

PATIENT
  Age: 49 Year
  Sex: Female

DRUGS (5)
  1. CORTISONE TABLET [Concomitant]
     Active Substance: CORTISONE ACETATE
     Indication: INFLAMMATION
     Dosage: 10 MG, QD
     Dates: start: 20210705
  2. AZATHIOPRIN [Concomitant]
     Active Substance: AZATHIOPRINE
     Indication: INFLAMMATION
     Dosage: 50 MG, QD
     Dates: start: 20210705
  3. QUENSYL [Concomitant]
     Active Substance: HYDROXYCHLOROQUINE
     Indication: INFLAMMATION
     Dosage: 200 MG, QD
     Dates: start: 20210705
  4. BELIMUMAB [Suspect]
     Active Substance: BELIMUMAB
     Indication: SYSTEMIC LUPUS ERYTHEMATOSUS
     Dosage: 200 MG, QD
     Dates: start: 20210327
  5. BELIMUMAB [Suspect]
     Active Substance: BELIMUMAB
     Dosage: 200 MG, WE

REACTIONS (7)
  - Arthralgia [Not Recovered/Not Resolved]
  - Joint stiffness [Unknown]
  - Erythema [Not Recovered/Not Resolved]
  - Pain in extremity [Unknown]
  - Musculoskeletal stiffness [Unknown]
  - Rosacea [Recovering/Resolving]
  - Pruritus [Not Recovered/Not Resolved]

NARRATIVE: CASE EVENT DATE: 20210426
